FAERS Safety Report 9221923 (Version 1)
Quarter: 2013Q2

REPORT INFORMATION
  Report Type: Spontaneous
  Country: US (occurrence: None)
  Receive Date: 20130410
  Receipt Date: 20130410
  Transmission Date: 20140414
  Serious: Yes (Hospitalization)
  Sender: FDA-Public Use
  Company Number: None

PATIENT
  Age: 52 Year
  Sex: Male
  Weight: 83.2 kg

DRUGS (7)
  1. COUMADIN [Suspect]
     Indication: DEEP VEIN THROMBOSIS
     Dosage: 6MG  DAILY  PO?RECENT
     Route: 048
  2. COUMADIN [Suspect]
     Indication: PULMONARY EMBOLISM
     Dosage: 6MG  DAILY  PO?RECENT
     Route: 048
  3. ADVIL PM [Suspect]
     Indication: INSOMNIA
     Dosage: ?  QPM  PO?CHRONIC
     Route: 048
  4. LOTREL [Concomitant]
  5. NORVASC [Concomitant]
  6. DILAUDID [Concomitant]
  7. INSULIN HUMALOG [Concomitant]

REACTIONS (1)
  - Diverticulum intestinal haemorrhagic [None]
